FAERS Safety Report 7089172-0 (Version None)
Quarter: 2010Q4

REPORT INFORMATION
  Report Type: 
  Country: None (occurrence: None)
  Receive Date: 20101108
  Receipt Date: 20100119
  Transmission Date: 20110411
  Serious: Yes (Death)
  Sender: FDA-Public Use
  Company Number: PHHY2010AR73520

PATIENT
  Sex: Female

DRUGS (4)
  1. CLOZAPINE [Suspect]
     Dosage: UNK
     Dates: start: 19941001
  2. HALOPIDOL [Concomitant]
     Dosage: 15 MG
  3. RIVOTRIL [Concomitant]
     Dosage: 3 MG
  4. VALCOTE [Concomitant]
     Dosage: 1000 MG

REACTIONS (1)
  - DEATH [None]
